FAERS Safety Report 9679078 (Version 4)
Quarter: 2014Q1

REPORT INFORMATION
  Report Type: Report from Study
  Country: GB (occurrence: GB)
  Receive Date: 20131108
  Receipt Date: 20140204
  Transmission Date: 20141002
  Serious: Yes (Hospitalization)
  Sender: FDA-Public Use
  Company Number: GB-ROCHE-1072928

PATIENT
  Age: 65 Year
  Sex: Female
  Weight: 96.7 kg

DRUGS (21)
  1. OBINUTUZUMAB [Suspect]
     Indication: NON-HODGKIN^S LYMPHOMA UNSPECIFIED HISTOLOGY INDOLENT
     Dosage: DATE OF MOST RECENT DOSE PRIOR TO SAE : 23/MAY/2012, DOSE CONCENTRATION 4MG/ML VOLUME: 62.2 ML
     Route: 042
     Dates: start: 20120523
  2. BENDAMUSTINE [Suspect]
     Indication: NON-HODGKIN^S LYMPHOMA UNSPECIFIED HISTOLOGY INDOLENT
     Dosage: LAST DOSE PRIOR TO SAE: 23/MAY/2012
     Route: 042
     Dates: start: 20120523
  3. PREDNISOLONE [Suspect]
     Indication: NON-HODGKIN^S LYMPHOMA UNSPECIFIED HISTOLOGY INDOLENT
     Dosage: DATE OF MOST RECENT DOSE PRIOR TO SAE : 23/MAY/2012, DOSE OF LAST STUDY DRUG ADMINISTERED: 100 MG
     Route: 048
  4. ONDANSETRON [Concomitant]
     Indication: NAUSEA
     Route: 065
     Dates: start: 20120523
  5. METOCLOPRAMIDE [Concomitant]
     Indication: NAUSEA
     Route: 065
     Dates: start: 20120523
  6. ALLOPURINOL [Concomitant]
     Route: 065
     Dates: start: 20120517, end: 20130515
  7. FOLIC ACID [Concomitant]
     Indication: HAEMOLYSIS
     Route: 065
     Dates: start: 20120518
  8. FOLIC ACID [Concomitant]
     Indication: PROPHYLAXIS
  9. DALTEPARIN [Concomitant]
     Indication: PROPHYLAXIS
     Route: 065
     Dates: start: 20120518, end: 20120601
  10. DALTEPARIN [Concomitant]
     Indication: DEEP VEIN THROMBOSIS
  11. DALTEPARIN [Concomitant]
     Indication: PULMONARY EMBOLISM
  12. ACYCLOVIR [Concomitant]
     Indication: ANTIVIRAL PROPHYLAXIS
     Route: 065
     Dates: start: 20120523, end: 20130515
  13. LACTULOSE [Concomitant]
     Indication: CONSTIPATION
     Route: 065
     Dates: start: 20120525, end: 20120601
  14. LACTULOSE [Concomitant]
     Route: 065
     Dates: start: 20120526, end: 20120529
  15. AUGMENTIN [Concomitant]
     Indication: ESCHERICHIA URINARY TRACT INFECTION
     Route: 065
     Dates: start: 20120526, end: 20120601
  16. TAZOCIN [Concomitant]
     Indication: PYREXIA
     Route: 065
     Dates: start: 20120528, end: 20120529
  17. GENTAMICIN [Concomitant]
     Indication: PYREXIA
     Route: 065
     Dates: start: 20120528, end: 20120529
  18. SENNA [Concomitant]
     Indication: CONSTIPATION
     Route: 065
     Dates: start: 20120525
  19. SENNA [Concomitant]
     Route: 065
     Dates: start: 20120526, end: 20120529
  20. IBUPROFEN [Concomitant]
     Indication: ANALGESIC THERAPY
     Route: 065
     Dates: start: 20120521
  21. PLATELETS [Concomitant]
     Indication: THROMBOCYTOPENIA
     Route: 065
     Dates: start: 20120525, end: 20120525

REACTIONS (3)
  - Pulmonary oedema [Recovered/Resolved]
  - Dyspnoea [Recovered/Resolved]
  - Infusion related reaction [Recovered/Resolved]
